FAERS Safety Report 22539439 (Version 3)
Quarter: 2023Q4

REPORT INFORMATION
  Report Type: 
  Country: CA (occurrence: CA)
  Receive Date: 20230609
  Receipt Date: 20231031
  Transmission Date: 20240109
  Serious: Yes (Life-Threatening, Hospitalization, Other)
  Sender: FDA-Public Use
  Company Number: CA-CELLTRION INC.-2022CA012884

PATIENT

DRUGS (4)
  1. YUFLYMA [Suspect]
     Active Substance: ADALIMUMAB-AATY
     Indication: Rheumatoid arthritis
     Dosage: 40 MG
     Route: 058
     Dates: start: 20220729
  2. YUFLYMA [Suspect]
     Active Substance: ADALIMUMAB-AATY
     Dosage: 40MG, EVERY 2 WEEKS (40MG / 0.4ML AI AUTOINJECTOR)
     Route: 058
     Dates: start: 20220729
  3. YUFLYMA [Suspect]
     Active Substance: ADALIMUMAB-AATY
     Dosage: 40.0 MILLIGRAM
     Route: 058
  4. YUFLYMA [Suspect]
     Active Substance: ADALIMUMAB-AATY
     Dosage: 40.0 MILLIGRAM
     Route: 058

REACTIONS (8)
  - Myocardial infarction [Recovering/Resolving]
  - Neoplasm malignant [Unknown]
  - Gastroenteritis viral [Recovering/Resolving]
  - Off label use [Recovering/Resolving]
  - Product dose omission issue [Recovering/Resolving]
  - Intentional dose omission [Recovering/Resolving]
  - Coronary artery occlusion [Unknown]
  - Therapy interrupted [Unknown]

NARRATIVE: CASE EVENT DATE: 20220908
